FAERS Safety Report 7012988-3 (Version None)
Quarter: 2010Q3

REPORT INFORMATION
  Report Type: 
  Country: None (occurrence: None)
  Receive Date: 20100915
  Receipt Date: 20100223
  Transmission Date: 20110219
  Serious: Yes (Other)
  Sender: FDA-Public Use
  Company Number: US-WYE-H13779310

PATIENT
  Age: 17 Year
  Sex: Male
  Weight: 109.87 kg

DRUGS (4)
  1. ADVIL [Suspect]
     Indication: TOOTH ABSCESS
     Dosage: 2 TO 4 LIQUI-GELS 3 TIMES DAILY PER DENTIST'S ADVICE, ORAL
     Route: 048
     Dates: start: 20100208, end: 20100218
  2. DARVOCET [Suspect]
     Indication: TOOTH ABSCESS
     Dosage: ORAL
     Route: 048
     Dates: start: 20100201
  3. ACETAMINOPHEN [Suspect]
     Indication: TOOTH ABSCESS
     Dosage: ORAL
     Route: 048
     Dates: start: 20100201
  4. VICODIN [Suspect]
     Indication: TOOTH ABSCESS
     Dosage: ORAL
     Route: 048
     Dates: start: 20090201

REACTIONS (1)
  - HEPATITIS [None]
